FAERS Safety Report 6598553-0 (Version None)
Quarter: 2010Q1

REPORT INFORMATION
  Report Type: 
  Country: None (occurrence: None)
  Receive Date: 20100224
  Receipt Date: 20051017
  Transmission Date: 20100710
  Serious: Yes (Disabling)
  Sender: FDA-Public Use
  Company Number: US-ALLERGAN-200212999

PATIENT
  Age: 51 Year
  Sex: Female
  Weight: 49.091 kg

DRUGS (2)
  1. BOTOX COSMETIC [Suspect]
     Indication: SKIN WRINKLING
     Dosage: 155UNITS, PRN
     Route: 030
     Dates: start: 20020618
  2. HYALAFORM [Concomitant]
     Indication: DRUG USE FOR UNKNOWN INDICATION

REACTIONS (37)
  - ANXIETY [None]
  - ASTHENIA [None]
  - BURNING SENSATION [None]
  - DECREASED APPETITE [None]
  - DEPRESSION [None]
  - DRY SKIN [None]
  - DYSPEPSIA [None]
  - DYSPHAGIA [None]
  - DYSPHONIA [None]
  - GLOSSODYNIA [None]
  - HYPOAESTHESIA [None]
  - INFLUENZA [None]
  - INJECTION SITE ANAESTHESIA [None]
  - INSOMNIA [None]
  - JOINT STIFFNESS [None]
  - LARYNGEAL OEDEMA [None]
  - MUSCLE CONTRACTIONS INVOLUNTARY [None]
  - MUSCLE TIGHTNESS [None]
  - MUSCULAR WEAKNESS [None]
  - MUSCULOSKELETAL STIFFNESS [None]
  - NECK PAIN [None]
  - NEURALGIA [None]
  - NEUROPATHY PERIPHERAL [None]
  - ORAL MUCOSAL DISCOLOURATION [None]
  - PAIN IN JAW [None]
  - PARAESTHESIA [None]
  - RADICULOPATHY [None]
  - SENSATION OF FOREIGN BODY [None]
  - SENSORY DISTURBANCE [None]
  - SKIN TIGHTNESS [None]
  - SWOLLEN TONGUE [None]
  - THIRST [None]
  - THROAT IRRITATION [None]
  - TONGUE DISCOLOURATION [None]
  - TONGUE DISORDER [None]
  - TONGUE DRY [None]
  - VIRAL INFECTION [None]
